FAERS Safety Report 5097690-X (Version None)
Quarter: 2006Q3

REPORT INFORMATION
  Report Type: 
  Country: None (occurrence: None)
  Receive Date: 20060901
  Receipt Date: 20060821
  Transmission Date: 20061208
  Serious: Yes (Hospitalization)
  Sender: FDA-Public Use
  Company Number: 2006BH012969

PATIENT
  Age: 46 Year
  Sex: Male
  Weight: 98 kg

DRUGS (10)
  1. EXTRANEAL [Suspect]
     Indication: RENAL FAILURE CHRONIC
     Dosage: 2000 ML; EVERY DAY; IP
     Route: 033
     Dates: start: 20040713
  2. DIANEAL [Concomitant]
  3. LASIX [Concomitant]
  4. FERROMIA [Concomitant]
  5. ROCALTROL [Concomitant]
  6. RENAGEL [Concomitant]
  7. CALCIUM CARBONATE [Concomitant]
  8. GASTER [Concomitant]
  9. ESPO [Concomitant]
  10. ADALAT [Concomitant]

REACTIONS (3)
  - CEREBRAL HAEMORRHAGE [None]
  - PERITONITIS [None]
  - WRONG TECHNIQUE IN DRUG USAGE PROCESS [None]
